FAERS Safety Report 18089097 (Version 3)
Quarter: 2021Q3

REPORT INFORMATION
  Report Type: Other
  Country: US (occurrence: US)
  Receive Date: 20200730
  Receipt Date: 20210804
  Transmission Date: 20211014
  Serious: Yes (Hospitalization, Other)
  Sender: FDA-Public Use
  Company Number: US-ROCHE-2649891

PATIENT
  Age: 70 Year
  Sex: Female
  Weight: 110.78 kg

DRUGS (12)
  1. NORCO [Concomitant]
     Active Substance: ACETAMINOPHEN\HYDROCODONE BITARTRATE
     Indication: PAIN
     Dosage: 10?325 MG TABLET
     Route: 048
  2. MOBIC [Concomitant]
     Active Substance: MELOXICAM
     Route: 048
  3. COLACE [Concomitant]
     Active Substance: DOCUSATE SODIUM
     Route: 048
  4. FOLATE [Concomitant]
     Active Substance: FOLATE SODIUM
     Route: 048
  5. LASIX [Concomitant]
     Active Substance: FUROSEMIDE
     Route: 048
  6. LOPRESSOR [Concomitant]
     Active Substance: METOPROLOL TARTRATE
     Route: 048
  7. MUCINEX [Concomitant]
     Active Substance: GUAIFENESIN
     Route: 048
  8. MAGNESIUM OXIDE. [Concomitant]
     Active Substance: MAGNESIUM OXIDE
     Route: 048
  9. MONODOX [DOXYCYCLINE] [Concomitant]
     Route: 048
  10. ACTEMRA [Suspect]
     Active Substance: TOCILIZUMAB
     Indication: GIANT CELL ARTERITIS
     Route: 058
     Dates: start: 20191224
  11. DELTASONE [Concomitant]
     Active Substance: PREDNISONE
     Dosage: 40 MGX3 DAYS THEN 30MG FOR 3 DAYS THEN 20 MG FOR 3 DAYS THEN 10MG FOR 3 DAYS
     Route: 048
  12. LYRICA [Concomitant]
     Active Substance: PREGABALIN
     Route: 048

REACTIONS (6)
  - Kidney infection [Unknown]
  - Monoplegia [Unknown]
  - Gait inability [Unknown]
  - Hypotension [Unknown]
  - Spinal stroke [Not Recovered/Not Resolved]
  - Nephrolithiasis [Not Recovered/Not Resolved]

NARRATIVE: CASE EVENT DATE: 20200617
